FAERS Safety Report 8285936-6 (Version None)
Quarter: 2012Q2

REPORT INFORMATION
  Report Type: 
  Country: None (occurrence: None)
  Receive Date: 20120415
  Receipt Date: 20120402
  Transmission Date: 20120825
  Serious: Yes (Disabling)
  Sender: FDA-Public Use
  Company Number: GB-MYLANLABS-2012S1004249

PATIENT
  Age: 47 Year
  Sex: Male
  Weight: 96.9 kg

DRUGS (28)
  1. BISOPROLOL [Concomitant]
     Indication: PRODUCT USED FOR UNKNOWN INDICATION
     Dates: start: 20111110, end: 20111208
  2. VALPROATE SODIUM [Concomitant]
     Dates: start: 20111213, end: 20120208
  3. ACETAMINOPHEN [Concomitant]
     Indication: PRODUCT USED FOR UNKNOWN INDICATION
     Dates: start: 20111110, end: 20111208
  4. AMLODIPINE [Suspect]
     Indication: PRODUCT USED FOR UNKNOWN INDICATION
     Dates: start: 20120117, end: 20120131
  5. ASPIRIN [Concomitant]
     Dates: start: 20111213, end: 20120208
  6. GLYCERYL TRINITRATE [Concomitant]
     Indication: PRODUCT USED FOR UNKNOWN INDICATION
     Dates: start: 20111213, end: 20120208
  7. PROCTOSEDYL /00095901/ [Concomitant]
     Dates: start: 20111025, end: 20111209
  8. LAXIDO [Concomitant]
     Indication: PRODUCT USED FOR UNKNOWN INDICATION
     Dates: start: 20111110, end: 20111208
  9. OMEPRAZOLE [Concomitant]
     Indication: PRODUCT USED FOR UNKNOWN INDICATION
     Dates: start: 20111110, end: 20111208
  10. OTOMIZE [Concomitant]
     Indication: PRODUCT USED FOR UNKNOWN INDICATION
     Dates: start: 20111114, end: 20111205
  11. PROCTOSEDYL /00095901/ [Concomitant]
     Indication: PRODUCT USED FOR UNKNOWN INDICATION
     Dates: start: 20111213, end: 20120208
  12. SENNA [Concomitant]
     Indication: PRODUCT USED FOR UNKNOWN INDICATION
     Dates: start: 20111130, end: 20111228
  13. SIMVASTATIN [Concomitant]
     Dates: start: 20111213, end: 20120208
  14. BENDROFLUMETHIAZIDE [Concomitant]
     Indication: PRODUCT USED FOR UNKNOWN INDICATION
     Dates: start: 20111110, end: 20111208
  15. CINCHOCAINE [Concomitant]
     Indication: PRODUCT USED FOR UNKNOWN INDICATION
     Dates: start: 20111125, end: 20111205
  16. VALPROATE SODIUM [Concomitant]
     Indication: PRODUCT USED FOR UNKNOWN INDICATION
     Dates: start: 20111110, end: 20111208
  17. LAXIDO [Concomitant]
     Dates: start: 20111213, end: 20120208
  18. ACETAMINOPHEN [Concomitant]
     Dates: start: 20111213, end: 20120208
  19. RAMIPRIL [Concomitant]
     Dates: start: 20111213, end: 20120208
  20. BENDROFLUMETHIAZIDE [Concomitant]
     Dates: start: 20111213, end: 20120208
  21. BETAMETHASONE VALERATE [Concomitant]
     Indication: PRODUCT USED FOR UNKNOWN INDICATION
     Dates: start: 20120117, end: 20120214
  22. BISOPROLOL [Concomitant]
     Dates: start: 20111213, end: 20120208
  23. GLYCERYL TRINITRATE [Concomitant]
     Dates: start: 20111025, end: 20111209
  24. OMEPRAZOLE [Concomitant]
     Dates: start: 20111213, end: 20120208
  25. RAMIPRIL [Concomitant]
     Indication: PRODUCT USED FOR UNKNOWN INDICATION
     Dates: start: 20111110, end: 20111208
  26. GLYCEROL 2.6% [Concomitant]
     Indication: PRODUCT USED FOR UNKNOWN INDICATION
     Dates: start: 20111207, end: 20111209
  27. SIMVASTATIN [Concomitant]
     Indication: PRODUCT USED FOR UNKNOWN INDICATION
     Dates: start: 20111110, end: 20111208
  28. ASPIRIN [Concomitant]
     Indication: PRODUCT USED FOR UNKNOWN INDICATION
     Dates: start: 20111110, end: 20111208

REACTIONS (1)
  - EPILEPSY [None]
